FAERS Safety Report 24429214 (Version 1)
Quarter: 2024Q4

REPORT INFORMATION
  Report Type: Spontaneous
  Country: RS (occurrence: RS)
  Receive Date: 20241011
  Receipt Date: 20241011
  Transmission Date: 20250114
  Serious: Yes (Hospitalization, Other)
  Sender: ANI
  Company Number: RS-ANIPHARMA-2024-RS-000010

PATIENT
  Age: 66 Year
  Sex: Female

DRUGS (2)
  1. ARIMIDEX [Suspect]
     Active Substance: ANASTROZOLE
     Indication: Breast cancer
     Dosage: 1 MILLIGRAM, QD
     Route: 048
     Dates: start: 202303
  2. HERCEPTIN [Concomitant]
     Active Substance: TRASTUZUMAB
     Dates: start: 202403, end: 202409

REACTIONS (10)
  - Pneumonia [Unknown]
  - Sepsis [Unknown]
  - Diabetes mellitus inadequate control [Unknown]
  - Respiratory failure [Unknown]
  - Dyspnoea [Unknown]
  - Asthenia [Unknown]
  - Sputum retention [Unknown]
  - Pyrexia [Unknown]
  - Decubitus ulcer [Unknown]
  - Pleural effusion [Unknown]

NARRATIVE: CASE EVENT DATE: 20240701
